FAERS Safety Report 17257922 (Version 1)
Quarter: 2020Q1

REPORT INFORMATION
  Report Type: Spontaneous
  Country: US (occurrence: US)
  Receive Date: 20200110
  Receipt Date: 20200110
  Transmission Date: 20200409
  Serious: No
  Sender: FDA-Public Use
  Company Number: US-SUNOVION-2019SUN005531

PATIENT
  Sex: Male

DRUGS (1)
  1. LUNESTA [Suspect]
     Active Substance: ESZOPICLONE
     Dosage: 2 MG
     Route: 048

REACTIONS (4)
  - Abdominal discomfort [Unknown]
  - Depression [Unknown]
  - Dizziness [Unknown]
  - Anxiety [Unknown]
